FAERS Safety Report 8879517 (Version 2)
Quarter: 2012Q4

REPORT INFORMATION
  Report Type: 
  Country: US (occurrence: US)
  Receive Date: 20121031
  Receipt Date: 20121107
  Transmission Date: 20130627
  Serious: No
  Sender: FDA-Public Use
  Company Number: US-TEVA-364738USA

PATIENT
  Sex: Male

DRUGS (4)
  1. AZILECT [Suspect]
     Indication: PARKINSON^S DISEASE
     Dosage: 1 Milligram Daily;
     Route: 048
     Dates: start: 201209, end: 201210
  2. AZILECT [Suspect]
     Route: 048
     Dates: start: 20121101
  3. SINEMET [Concomitant]
  4. VALSARTAN [Concomitant]

REACTIONS (1)
  - Drug effect decreased [Not Recovered/Not Resolved]
